FAERS Safety Report 9753739 (Version 1)
Quarter: 2013Q4

REPORT INFORMATION
  Report Type: Spontaneous
  Country: US (occurrence: US)
  Receive Date: 20131213
  Receipt Date: 20131213
  Transmission Date: 20140711
  Serious: No
  Sender: FDA-Public Use
  Company Number: US-GILEAD-2010-0026674

PATIENT
  Sex: Male

DRUGS (13)
  1. LETAIRIS [Suspect]
     Indication: PULMONARY ARTERIAL HYPERTENSION
     Route: 048
     Dates: start: 20091102
  2. ADVIL [Concomitant]
  3. ADVAIR [Concomitant]
  4. ALBUTEROL INHALER [Concomitant]
  5. ALLEGRA [Concomitant]
  6. NASACORT [Concomitant]
  7. VERAMYST [Concomitant]
  8. MUCINEX [Concomitant]
  9. TUMS [Concomitant]
  10. PEPCID AC [Concomitant]
  11. VFEND [Concomitant]
  12. LUNESTA [Concomitant]
  13. CENTRUM [Concomitant]

REACTIONS (1)
  - Chapped lips [Unknown]
